FAERS Safety Report 5586928-8 (Version None)
Quarter: 2008Q1

REPORT INFORMATION
  Report Type: 
  Country: None (occurrence: None)
  Receive Date: 20080108
  Receipt Date: 20080108
  Transmission Date: 20080703
  Serious: Yes (Hospitalization)
  Sender: FDA-Public Use
  Company Number: None

PATIENT
  Age: 43 Year
  Sex: Female

DRUGS (2)
  1. LITHIUM CARBONATE [Suspect]
     Indication: BIPOLAR DISORDER
     Dosage: 300MG BID OPHTHALMIC
     Route: 047
  2. ALPRAZOLAM [Suspect]
     Indication: ANXIOLYTIC THERAPY
     Dosage: 1-3MG BID OPHTHALMIC
     Route: 047

REACTIONS (19)
  - ACUTE RESPIRATORY FAILURE [None]
  - AGITATION [None]
  - ATAXIA [None]
  - COMA [None]
  - COORDINATION ABNORMAL [None]
  - DEPRESSED LEVEL OF CONSCIOUSNESS [None]
  - DISORIENTATION [None]
  - DRUG LEVEL INCREASED [None]
  - DYSARTHRIA [None]
  - HYPERREFLEXIA [None]
  - HYPOPNOEA [None]
  - LETHARGY [None]
  - NAUSEA [None]
  - OLIGURIA [None]
  - PARALYSIS [None]
  - PNEUMONIA [None]
  - RESPIRATORY ARREST [None]
  - TREMOR [None]
  - VOMITING [None]
